FAERS Safety Report 7776480-0 (Version None)
Quarter: 2011Q3

REPORT INFORMATION
  Report Type: 
  Country: None (occurrence: None)
  Receive Date: 20110926
  Receipt Date: 20110915
  Transmission Date: 20111222
  Serious: Yes (Other)
  Sender: FDA-Public Use
  Company Number: US-JNJFOC-20110907713

PATIENT
  Sex: Female
  Weight: 49.9 kg

DRUGS (3)
  1. PAIN MEDICATION UNSPECIFIED [Concomitant]
     Indication: PAIN
     Route: 065
  2. FENTANYL-100 [Suspect]
     Indication: PAIN
     Route: 062
  3. FENTANYL-100 [Suspect]
     Route: 062
     Dates: start: 20110908

REACTIONS (8)
  - DRUG EFFECT DECREASED [None]
  - EHLERS-DANLOS SYNDROME [None]
  - FIBROMYALGIA [None]
  - WRONG TECHNIQUE IN DRUG USAGE PROCESS [None]
  - SINUSITIS [None]
  - DRUG DOSE OMISSION [None]
  - INAPPROPRIATE SCHEDULE OF DRUG ADMINISTRATION [None]
  - PRODUCT QUALITY ISSUE [None]
